FAERS Safety Report 5462470-X (Version None)
Quarter: 2007Q3

REPORT INFORMATION
  Report Type: 
  Country: None (occurrence: None)
  Receive Date: 20070814
  Receipt Date: 20070206
  Transmission Date: 20080115
  Serious: Yes (Life-Threatening)
  Sender: FDA-Public Use
  Company Number: PRI#0702040

PATIENT
  Age: 15 Year
  Sex: Male

DRUGS (2)
  1. TROPHAMINE [Suspect]
  2. TPN ADMIXTURE [Concomitant]

REACTIONS (1)
  - HYPERSENSITIVITY [None]
